FAERS Safety Report 10074692 (Version 1)
Quarter: 2014Q2

REPORT INFORMATION
  Report Type: Report from Study
  Country: FR (occurrence: FR)
  Receive Date: 20140414
  Receipt Date: 20140414
  Transmission Date: 20141212
  Serious: Yes (Hospitalization)
  Sender: FDA-Public Use
  Company Number: FR-ROCHE-1378366

PATIENT
  Sex: Female

DRUGS (4)
  1. RITUXIMAB [Suspect]
     Indication: RHEUMATOID ARTHRITIS
     Route: 042
     Dates: start: 20070807
  2. METHOTREXATE [Concomitant]
  3. LEFLUNOMIDE [Concomitant]
  4. CORTANCYL [Concomitant]
     Route: 065

REACTIONS (6)
  - Cholestasis [Unknown]
  - Fall [Unknown]
  - Iron deficiency anaemia [Recovered/Resolved]
  - Foot deformity [Unknown]
  - Urinary tract infection [Recovered/Resolved]
  - Pelvic fracture [Not Recovered/Not Resolved]
